FAERS Safety Report 5225862-X (Version None)
Quarter: 2007Q1

REPORT INFORMATION
  Report Type: 
  Country: None (occurrence: None)
  Receive Date: 20070201
  Receipt Date: 20070122
  Transmission Date: 20070707
  Serious: Yes (Hospitalization)
  Sender: FDA-Public Use
  Company Number: HQWYE158222JAN07

PATIENT
  Age: 35 Year
  Sex: Male

DRUGS (5)
  1. AVLOCARDYL [Suspect]
     Indication: MIGRAINE WITH AURA
     Dosage: UNSPECIFIED
     Route: 048
     Dates: end: 20050108
  2. TAHOR [Concomitant]
     Indication: HYPERCHOLESTEROLAEMIA
     Dosage: UNSPECIFIED
     Route: 048
  3. AMITRIPTYLINE HCL [Concomitant]
     Indication: GENERAL SYMPTOM
     Dosage: UNSPECIFIED
     Route: 048
     Dates: end: 20061110
  4. SIBELIUM [Suspect]
     Indication: MIGRAINE WITH AURA
     Dosage: 10 MG TABLET , DOSE AND FREQUENCY UNSPECIFIED
     Route: 048
     Dates: end: 20050108
  5. PROPOFOL [Suspect]
     Indication: MIGRAINE WITH AURA
     Route: 048
     Dates: end: 20050108

REACTIONS (3)
  - CONDITION AGGRAVATED [None]
  - DRUG INEFFECTIVE [None]
  - MIGRAINE [None]
